FAERS Safety Report 5020618-5 (Version None)
Quarter: 2006Q2

REPORT INFORMATION
  Report Type: 
  Country: None (occurrence: None)
  Receive Date: 20060602
  Receipt Date: 20060522
  Transmission Date: 20061013
  Serious: Yes (Hospitalization, Other)
  Sender: FDA-Public Use
  Company Number: 2006BI004918

PATIENT
  Age: 50 Year
  Sex: Male

DRUGS (7)
  1. AVONEX [Suspect]
     Indication: MULTIPLE SCLEROSIS
     Dosage: 30 UG;QW;IM
     Route: 030
     Dates: start: 19970101, end: 20030917
  2. AVONEX [Suspect]
     Indication: MULTIPLE SCLEROSIS
     Dosage: 30 UG;QW;IM
     Route: 030
     Dates: start: 20030923
  3. PROVIGIL [Concomitant]
  4. DARVOCET [Concomitant]
  5. ANTI-PLATELET THERAPY [Concomitant]
  6. IMIPRAMINE [Concomitant]
  7. RISPERDAL [Concomitant]

REACTIONS (15)
  - ASTHENIA [None]
  - CONVULSION [None]
  - DEHYDRATION [None]
  - DUODENAL ULCER [None]
  - EROSIVE OESOPHAGITIS [None]
  - GASTRITIS [None]
  - HAEMATEMESIS [None]
  - ILEAL STENOSIS [None]
  - LOSS OF CONSCIOUSNESS [None]
  - MALNUTRITION [None]
  - MENTAL STATUS CHANGES [None]
  - METABOLIC DISORDER [None]
  - ULCER HAEMORRHAGE [None]
  - WEIGHT DECREASED [None]
  - WEIGHT INCREASED [None]
